FAERS Safety Report 5872312-6 (Version None)
Quarter: 2008Q3

REPORT INFORMATION
  Report Type: 
  Country: None (occurrence: None)
  Receive Date: 20080905
  Receipt Date: 20080826
  Transmission Date: 20090109
  Serious: Yes (Other)
  Sender: FDA-Public Use
  Company Number: JP-SANOFI-SYNTHELABO-A01200703284

PATIENT
  Sex: Male
  Weight: 73 kg

DRUGS (3)
  1. DROLEPTAN [Suspect]
     Indication: ANAESTHESIA
     Route: 042
     Dates: start: 20060802, end: 20060802
  2. PENTAZOCINE LACTATE [Suspect]
     Indication: ANAESTHESIA
     Route: 042
     Dates: start: 20060802, end: 20060802
  3. XYLOCAINE [Suspect]
     Indication: ANAESTHESIA
     Route: 050
     Dates: start: 20060802, end: 20060802

REACTIONS (3)
  - APNOEA [None]
  - CYANOSIS [None]
  - GRAND MAL CONVULSION [None]
